FAERS Safety Report 10816528 (Version 1)
Quarter: 2015Q1

REPORT INFORMATION
  Report Type: Spontaneous
  Country: US (occurrence: US)
  Receive Date: 20150218
  Receipt Date: 20150218
  Transmission Date: 20150721
  Serious: No
  Sender: FDA-Public Use
  Company Number: US-B.I. PHARMACEUTICALS,INC./RIDGEFIELD-2015-BI-06593BP

PATIENT
  Sex: Male
  Weight: 72.57 kg

DRUGS (3)
  1. COMBIVENT [Suspect]
     Active Substance: ALBUTEROL SULFATE\IPRATROPIUM BROMIDE
     Indication: ALPHA-1 ANTI-TRYPSIN DEFICIENCY
     Dosage: STRENGTH: 18 MCG / 103 MCG; PRN
     Route: 055
     Dates: end: 2009
  2. PROLASTIN [Concomitant]
     Active Substance: .ALPHA.1-PROTEINASE INHIBITOR HUMAN
     Indication: ALPHA-1 ANTI-TRYPSIN DEFICIENCY
     Dosage: INFUSION
     Route: 042
     Dates: start: 2007
  3. SYMBICORT [Concomitant]
     Active Substance: BUDESONIDE\FORMOTEROL FUMARATE DIHYDRATE
     Indication: DYSPNOEA
     Dosage: PRN
     Route: 055
     Dates: start: 2010

REACTIONS (2)
  - Off label use [Unknown]
  - Heart rate abnormal [Recovered/Resolved]
